FAERS Safety Report 5328199-3 (Version None)
Quarter: 2007Q2

REPORT INFORMATION
  Report Type: 
  Country: None (occurrence: None)
  Receive Date: 20070515
  Receipt Date: 20070501
  Transmission Date: 20071010
  Serious: Yes (Hospitalization, Other)
  Sender: FDA-Public Use
  Company Number: 2007BI008615

PATIENT
  Age: 36 Year
  Sex: Female

DRUGS (2)
  1. AVONEX [Suspect]
     Indication: MULTIPLE SCLEROSIS
     Dosage: 30 UG QW IM
     Route: 030
     Dates: start: 20010101, end: 20020801
  2. AVONEX [Suspect]
     Indication: MULTIPLE SCLEROSIS
     Dosage: 15 UG QW IM
     Route: 030
     Dates: start: 20070401

REACTIONS (5)
  - ABASIA [None]
  - ABNORMAL LABOUR [None]
  - CAESAREAN SECTION [None]
  - CONSTIPATION [None]
  - UNEVALUABLE EVENT [None]
